FAERS Safety Report 6971574-1 (Version None)
Quarter: 2010Q3

REPORT INFORMATION
  Report Type: 
  Country: None (occurrence: None)
  Receive Date: 20100908
  Receipt Date: 20100901
  Transmission Date: 20110219
  Serious: Yes (Hospitalization)
  Sender: FDA-Public Use
  Company Number: US-AMGEN-KDL417020

PATIENT
  Sex: Male
  Weight: 115.8 kg

DRUGS (1)
  1. ENBREL [Suspect]
     Indication: PSORIASIS
     Dates: start: 20100415, end: 20100531

REACTIONS (4)
  - CONTUSION [None]
  - LACERATION [None]
  - ROAD TRAFFIC ACCIDENT [None]
  - SYNCOPE [None]
